FAERS Safety Report 7617548-9 (Version None)
Quarter: 2011Q3

REPORT INFORMATION
  Report Type: 
  Country: None (occurrence: None)
  Receive Date: 20110718
  Receipt Date: 20110707
  Transmission Date: 20111222
  Serious: Yes (Death, Life-Threatening)
  Sender: FDA-Public Use
  Company Number: GB-JNJFOC-20100401617

PATIENT
  Age: 79 Year
  Sex: Female
  Weight: 49 kg

DRUGS (2)
  1. REMICADE [Suspect]
     Indication: RHEUMATOID ARTHRITIS
     Route: 042
     Dates: start: 20070427, end: 20070522
  2. REMICADE [Suspect]
     Route: 042
     Dates: start: 20070316

REACTIONS (1)
  - ENDOMETRIAL CANCER [None]
